FAERS Safety Report 7407848-X (Version None)
Quarter: 2011Q1

REPORT INFORMATION
  Report Type: 
  Country: None (occurrence: None)
  Receive Date: 20110331
  Receipt Date: 20110324
  Transmission Date: 20110831
  Serious: Yes (Hospitalization)
  Sender: FDA-Public Use
  Company Number: 8040614

PATIENT
  Sex: Female
  Weight: 79.5 kg

DRUGS (6)
  1. CERTOLIZUMAB PEGOL [Suspect]
     Dosage: (200 MG 1X/2 WEEKS SUBCUTANEOUS)
     Route: 058
     Dates: start: 20080604
  2. FOLIC ACID [Concomitant]
  3. METHOTREXATE [Concomitant]
  4. LISINOPRIL [Concomitant]
  5. PREVACID [Concomitant]
  6. LEXAPRO [Concomitant]

REACTIONS (2)
  - HERPES PHARYNGITIS [None]
  - ORAL CANDIDIASIS [None]
